FAERS Safety Report 9694599 (Version 2)
Quarter: 2013Q4

REPORT INFORMATION
  Report Type: Spontaneous
  Country: MX (occurrence: MX)
  Receive Date: 20131118
  Receipt Date: 20131118
  Transmission Date: 20140711
  Serious: Yes (Other)
  Sender: FDA-Public Use
  Company Number: PHHY2013MX002998

PATIENT
  Age: 39 Year
  Sex: Male

DRUGS (2)
  1. EXFORGE HCT [Suspect]
     Indication: HYPERTENSION
     Dosage: 1 DF (320/10/25 MG), DAILY
     Route: 048
     Dates: start: 20110117
  2. LOPRESSOR [Concomitant]
     Indication: HYPERTENSION
     Dosage: 0.5 DF, DAILY
     Dates: start: 200901

REACTIONS (3)
  - Blood pressure inadequately controlled [Not Recovered/Not Resolved]
  - Blood pressure systolic increased [Not Recovered/Not Resolved]
  - Malaise [Unknown]
